FAERS Safety Report 9534784 (Version 1)
Quarter: 2013Q3

REPORT INFORMATION
  Report Type: Spontaneous
  Country: GB (occurrence: GB)
  Receive Date: 20130918
  Receipt Date: 20130918
  Transmission Date: 20140515
  Serious: Yes (Other)
  Sender: FDA-Public Use
  Company Number: GB-PFIZER INC-2013262440

PATIENT
  Sex: 0

DRUGS (1)
  1. INLYTA [Suspect]
     Dosage: UNK

REACTIONS (7)
  - Appendicitis perforated [Unknown]
  - Peritonitis [Unknown]
  - Dysphonia [Unknown]
  - Proteinuria [Unknown]
  - Abdominal pain [Unknown]
  - Proctalgia [Unknown]
  - Diarrhoea [Unknown]
